FAERS Safety Report 15368103 (Version 1)
Quarter: 2018Q3

REPORT INFORMATION
  Report Type: Spontaneous
  Country: US (occurrence: US)
  Receive Date: 20180910
  Receipt Date: 20180910
  Transmission Date: 20181010
  Serious: No
  Sender: FDA-Public Use
  Company Number: US-IMPAX LABORATORIES, INC-2017-IPXL-02881

PATIENT
  Sex: Male

DRUGS (4)
  1. DIGOXIN. [Suspect]
     Active Substance: DIGOXIN
     Indication: ATRIAL FIBRILLATION
     Dosage: UNK
     Route: 065
  2. NORTHERA [Suspect]
     Active Substance: DROXIDOPA
     Dosage: 100 MG, TID
     Route: 065
  3. NORTHERA [Suspect]
     Active Substance: DROXIDOPA
     Indication: PRODUCT USED FOR UNKNOWN INDICATION
     Dosage: THREE DAYS OF TITRATION, UNK
     Route: 065
  4. DIGOXIN. [Suspect]
     Active Substance: DIGOXIN
     Dosage: DOSE REDUCED, UNK

REACTIONS (2)
  - Hypotension [Unknown]
  - Dizziness [Unknown]
